FAERS Safety Report 5269642-8 (Version None)
Quarter: 2007Q1

REPORT INFORMATION
  Report Type: 
  Country: None (occurrence: None)
  Receive Date: 20070320
  Receipt Date: 20070314
  Transmission Date: 20070707
  Serious: Yes (Life-Threatening)
  Sender: FDA-Public Use
  Company Number: PHBS2007SE04530

PATIENT
  Age: 74 Year
  Sex: Female

DRUGS (2)
  1. AREDIA [Suspect]
     Route: 065
     Dates: start: 20010221, end: 20011101
  2. ZOMETA [Suspect]
     Dosage: 4MG/5ML
     Route: 065
     Dates: start: 20011129, end: 20051028

REACTIONS (1)
  - OSTEONECROSIS [None]
